FAERS Safety Report 24028992 (Version 3)
Quarter: 2024Q3

REPORT INFORMATION
  Report Type: Spontaneous
  Country: CN (occurrence: CN)
  Receive Date: 20240628
  Receipt Date: 20240712
  Transmission Date: 20241016
  Serious: Yes (Other)
  Sender: MERCK
  Company Number: CN-009507513-2406CHN009870

PATIENT
  Age: 66 Year
  Sex: Male

DRUGS (8)
  1. KEYTRUDA [Suspect]
     Active Substance: PEMBROLIZUMAB
     Indication: Oesophageal squamous cell carcinoma
     Dosage: CYCLE 1
     Dates: start: 20230509, end: 20240509
  2. KEYTRUDA [Suspect]
     Active Substance: PEMBROLIZUMAB
     Dosage: CYCLE 2
     Dates: start: 20230530, end: 20240530
  3. KEYTRUDA [Suspect]
     Active Substance: PEMBROLIZUMAB
     Dosage: 3 CYCLES (MAINTENANCE TREATMENT)
     Dates: start: 20230927, end: 20231122
  4. KEYTRUDA [Suspect]
     Active Substance: PEMBROLIZUMAB
     Dosage: 2 CYCLES (MAINTENANCE TREATMENT)
     Dates: start: 20240130, end: 20240228
  5. FLUOROURACIL [Suspect]
     Active Substance: FLUOROURACIL
     Indication: Oesophageal squamous cell carcinoma
     Dosage: CYCLE 1
     Dates: start: 20230509, end: 20230509
  6. FLUOROURACIL [Suspect]
     Active Substance: FLUOROURACIL
     Dosage: CYCLE 2
     Dates: start: 20230530, end: 20230530
  7. FLUOROURACIL [Suspect]
     Active Substance: FLUOROURACIL
     Dosage: 3 CYCLES (MAINTENANCE TREATMENT)
     Dates: start: 20230927, end: 20231122
  8. FLUOROURACIL [Suspect]
     Active Substance: FLUOROURACIL
     Dosage: 2 CYCLES (MAINTENANCE TREATMENT)
     Dates: start: 20240130, end: 20240228

REACTIONS (2)
  - Sepsis [Unknown]
  - Malignant neoplasm progression [Unknown]

NARRATIVE: CASE EVENT DATE: 20230101
